FAERS Safety Report 24578938 (Version 1)
Quarter: 2024Q4

REPORT INFORMATION
  Report Type: Spontaneous
  Country: US (occurrence: US)
  Receive Date: 20241105
  Receipt Date: 20241105
  Transmission Date: 20250115
  Serious: No
  Sender: Haleon PLC
  Company Number: US-HALEON-2206224

PATIENT

DRUGS (1)
  1. SENSODYNE PRONAMEL INTENSIVE ENAMEL REPAIR WHITENING [Suspect]
     Active Substance: POTASSIUM NITRATE\SODIUM FLUORIDE
     Indication: Product used for unknown indication

REACTIONS (4)
  - Nasal pruritus [Unknown]
  - Circumoral swelling [Unknown]
  - Ill-defined disorder [Unknown]
  - Hypersensitivity [Unknown]
